FAERS Safety Report 18180881 (Version 1)
Quarter: 2020Q3

REPORT INFORMATION
  Report Type: Spontaneous
  Country: US (occurrence: US)
  Receive Date: 20200820
  Receipt Date: 20200820
  Transmission Date: 20201103
  Serious: No
  Sender: FDA-Public Use
  Company Number: None

PATIENT
  Age: 58 Year
  Sex: Female

DRUGS (13)
  1. CLINDAMYCIN TOPICAL [Concomitant]
  2. TRAMADOL. [Concomitant]
     Active Substance: TRAMADOL
  3. LYRICA [Concomitant]
     Active Substance: PREGABALIN
  4. RINVOQ [Suspect]
     Active Substance: UPADACITINIB
  5. PLAQUENIL [Concomitant]
     Active Substance: HYDROXYCHLOROQUINE SULFATE
  6. MEDROL [Concomitant]
     Active Substance: METHYLPREDNISOLONE
  7. PENNSAID [Concomitant]
     Active Substance: DICLOFENAC SODIUM
  8. TIZANIDINE. [Concomitant]
     Active Substance: TIZANIDINE
  9. CLINDAMYCIN ORAL CAPSULE [Concomitant]
     Route: 048
  10. LISINOPRIL AND HYDROCHLOROTHIAZIDE [Suspect]
     Active Substance: HYDROCHLOROTHIAZIDE\LISINOPRIL
  11. ETODOLAC. [Concomitant]
     Active Substance: ETODOLAC
  12. FOSAMAX [Concomitant]
     Active Substance: ALENDRONATE SODIUM
  13. LEFLUNOMIDE. [Concomitant]
     Active Substance: LEFLUNOMIDE

REACTIONS (4)
  - Folliculitis [None]
  - Abdominal discomfort [None]
  - Muscle spasms [None]
  - Drug intolerance [None]
